FAERS Safety Report 8953676 (Version 2)
Quarter: 2013Q1

REPORT INFORMATION
  Report Type: Spontaneous
  Country: US (occurrence: US)
  Receive Date: 20121206
  Receipt Date: 20130102
  Transmission Date: 20140127
  Serious: Yes (Death, Hospitalization)
  Sender: FDA-Public Use
  Company Number: US-BAXTER-2012BAX025500

PATIENT
  Age: 68 None
  Sex: Female

DRUGS (3)
  1. DIANEAL LOW CALCIUM [Suspect]
     Indication: PERITONEAL DIALYSIS
     Route: 033
     Dates: end: 20121123
  2. DIANEAL LOW CALCIUM (ULTRABAG) [Suspect]
     Indication: PERITONEAL DIALYSIS
     Route: 033
     Dates: end: 20121123
  3. ETOPOSIDE [Suspect]
     Indication: NEUROENDOCRINE CARCINOMA OF THE SKIN

REACTIONS (15)
  - Respiratory failure [Fatal]
  - Leukopenia [Not Recovered/Not Resolved]
  - Oral candidiasis [Not Recovered/Not Resolved]
  - Cholecystitis acute [Unknown]
  - Mental status changes [Unknown]
  - Clostridium difficile colitis [Unknown]
  - Hypomagnesaemia [Unknown]
  - Dysphagia [Unknown]
  - Neuroendocrine carcinoma of the skin [Unknown]
  - Pancytopenia [Unknown]
  - Anaemia [Unknown]
  - No therapeutic response [Unknown]
  - Renal failure [Unknown]
  - Hypokalaemia [Unknown]
  - Hypertension [Unknown]
